FAERS Safety Report 7464925-5 (Version None)
Quarter: 2011Q2

REPORT INFORMATION
  Report Type: 
  Country: None (occurrence: None)
  Receive Date: 20110509
  Receipt Date: 20101209
  Transmission Date: 20111010
  Serious: Yes (Hospitalization, Other)
  Sender: FDA-Public Use
  Company Number: US-BAYER-201023267NA

PATIENT
  Age: 28 Year
  Sex: Female
  Weight: 77 kg

DRUGS (12)
  1. YASMIN [Suspect]
     Indication: ORAL CONTRACEPTION
     Route: 048
  2. DROSPIRENONE AND ETHINYL ESTRADIOL [Suspect]
     Indication: PRODUCT USED FOR UNKNOWN INDICATION
     Route: 048
  3. ZYRTEC-D 12 HOUR [Concomitant]
  4. ZEGERID [Concomitant]
     Dosage: 40 MG, QD
     Route: 048
  5. FIBERCON [Concomitant]
     Dosage: UNK UNK, CONT
     Route: 048
  6. GLYCOLAX [Concomitant]
  7. MISOPROSTOL [Concomitant]
  8. PAMINE FORTE [Concomitant]
  9. ZELNORM [Concomitant]
     Dosage: UNK
     Dates: start: 20050101
  10. PAMINE [Concomitant]
     Dosage: 5 MG, BID
     Route: 048
  11. ZELNORM [Concomitant]
     Dosage: 6 MG, BID
     Route: 048
  12. YAZ [Suspect]
     Indication: ORAL CONTRACEPTION
     Route: 048

REACTIONS (5)
  - INJURY [None]
  - ABDOMINAL PAIN UPPER [None]
  - CHOLECYSTITIS CHRONIC [None]
  - PAIN [None]
  - CHOLELITHIASIS [None]
